FAERS Safety Report 8684142 (Version 2)
Quarter: 2012Q4

REPORT INFORMATION
  Report Type: 
  Country: SE (occurrence: SE)
  Receive Date: 20120726
  Receipt Date: 20121127
  Transmission Date: 20130627
  Serious: Yes (Other)
  Sender: FDA-Public Use
  Company Number: SE-ELI_LILLY_AND_COMPANY-SE201207003939

PATIENT
  Age: 53 Year
  Sex: Female

DRUGS (1)
  1. CYMBALTA [Suspect]
     Indication: BIPOLAR DISORDER
     Dosage: UNK
     Dates: end: 20101208

REACTIONS (3)
  - Joint dislocation [Unknown]
  - Loss of consciousness [Unknown]
  - Convulsion [Unknown]
